FAERS Safety Report 4394587-5 (Version None)
Quarter: 2004Q3

REPORT INFORMATION
  Report Type: 
  Country: None (occurrence: None)
  Receive Date: 20040712
  Receipt Date: 20040630
  Transmission Date: 20050211
  Serious: Yes (Hospitalization)
  Sender: FDA-Public Use
  Company Number: FR-ROCHE-372726

PATIENT
  Age: 30 Year
  Sex: Male

DRUGS (1)
  1. LARIAM [Suspect]
     Indication: MALARIA PROPHYLAXIS
     Route: 048

REACTIONS (4)
  - LEFT VENTRICULAR FAILURE [None]
  - MYOCARDITIS [None]
  - PULMONARY OEDEMA [None]
  - SARCOIDOSIS [None]
